FAERS Safety Report 12526498 (Version 2)
Quarter: 2016Q3

REPORT INFORMATION
  Report Type: Report from Study
  Country: BR (occurrence: BR)
  Receive Date: 20160705
  Receipt Date: 20160809
  Transmission Date: 20161109
  Serious: Yes (Other)
  Sender: FDA-Public Use
  Company Number: PHHY2016BR089863

PATIENT
  Age: 54 Year
  Sex: Male
  Weight: 85 kg

DRUGS (3)
  1. RITALIN LA [Suspect]
     Active Substance: METHYLPHENIDATE HYDROCHLORIDE
     Indication: CATAPLEXY
     Dosage: 20 MG, QD
     Route: 048
     Dates: start: 20160616
  2. TEGRETOL CR [Concomitant]
     Active Substance: CARBAMAZEPINE
     Indication: PRODUCT USED FOR UNKNOWN INDICATION
     Dosage: 2 DF, QD
     Route: 048
  3. DONAREN [Concomitant]
     Active Substance: TRAZODONE HYDROCHLORIDE
     Indication: RAPID EYE MOVEMENTS SLEEP ABNORMAL
     Dosage: 0.66 DF, QD
     Route: 048

REACTIONS (8)
  - Drug ineffective [Unknown]
  - Narcolepsy [Recovering/Resolving]
  - Drug intolerance [Unknown]
  - Malaise [Recovering/Resolving]
  - Cerebrovascular accident [Recovering/Resolving]
  - Somnolence [Unknown]
  - Product use issue [Unknown]
  - Syncope [Unknown]

NARRATIVE: CASE EVENT DATE: 201606
